FAERS Safety Report 7527613-2 (Version None)
Quarter: 2011Q2

REPORT INFORMATION
  Report Type: 
  Country: None (occurrence: None)
  Receive Date: 20110607
  Receipt Date: 20110531
  Transmission Date: 20111010
  Serious: No
  Sender: FDA-Public Use
  Company Number: US-PFIZER INC-2011118328

PATIENT
  Sex: Female

DRUGS (2)
  1. SULFASALAZINE [Suspect]
  2. HUMIRA [Suspect]

REACTIONS (2)
  - ANTINUCLEAR ANTIBODY POSITIVE [None]
  - RED BLOOD CELL SEDIMENTATION RATE INCREASED [None]
